FAERS Safety Report 8542619-2 (Version None)
Quarter: 2012Q3

REPORT INFORMATION
  Report Type: 
  Country: None (occurrence: None)
  Receive Date: 20120726
  Receipt Date: 20120716
  Transmission Date: 20120928
  Serious: Yes (Other)
  Sender: FDA-Public Use
  Company Number: US-009507513-0906USA01971

PATIENT

DRUGS (18)
  1. BLINDED EZETIMIBE (+) SIMVASTATIN [Suspect]
     Indication: ACUTE CORONARY SYNDROME
     Route: 048
     Dates: start: 20060822
  2. BLINDED POST TRIAL THERAPY [Suspect]
     Indication: ACUTE CORONARY SYNDROME
     Route: 048
     Dates: start: 20060822
  3. ADVAIR [Concomitant]
     Dosage: 500/100
     Route: 055
     Dates: start: 20010101
  4. COMBIVENT [Concomitant]
     Dosage: 2 DF, QD
     Route: 055
     Dates: start: 20010101
  5. TOPROL-XL [Concomitant]
     Dosage: 100 MG, QD
     Route: 048
     Dates: start: 20040208
  6. PEPCID [Concomitant]
     Dosage: 2 DF, QD
     Route: 048
     Dates: start: 20050401
  7. SIMVASTATIN [Suspect]
     Indication: ACUTE CORONARY SYNDROME
     Dosage: UNK
     Dates: start: 20060822
  8. SIMVASTATIN [Suspect]
     Indication: ACUTE CORONARY SYNDROME
     Route: 048
     Dates: start: 20060822
  9. ALBUTEROL [Concomitant]
     Dosage: 5 MG, QD
     Route: 055
     Dates: start: 20010101
  10. LORCET-HD [Concomitant]
     Dosage: 5/500
     Route: 048
     Dates: start: 20071103
  11. BLINDED PRE TRIAL THERAPY [Suspect]
     Indication: ACUTE CORONARY SYNDROME
     Route: 048
     Dates: start: 20060822
  12. FLEXERIL [Concomitant]
     Dosage: 10 MG, QD
     Route: 048
     Dates: start: 20071103
  13. PLACEBO [Suspect]
     Indication: ACUTE CORONARY SYNDROME
     Route: 048
     Dates: start: 20060822
  14. ALEVE [Concomitant]
     Dosage: 220 MG, QD
     Route: 048
     Dates: start: 20060301
  15. CHANTIX [Concomitant]
     Dosage: 2 MG, QD
     Route: 048
     Dates: start: 20060701
  16. PAXIL CR [Concomitant]
     Dosage: 25 MG, QD
     Route: 048
     Dates: start: 20030101
  17. PLAVIX [Concomitant]
     Dosage: 75 MG, QD
     Route: 048
     Dates: start: 20060812
  18. ASPIRIN [Concomitant]
     Dosage: 81 MG, QD
     Route: 048
     Dates: start: 20040208

REACTIONS (9)
  - LUNG NEOPLASM [None]
  - CHRONIC OBSTRUCTIVE PULMONARY DISEASE [None]
  - POST PROCEDURAL COMPLICATION [None]
  - LOWER GASTROINTESTINAL HAEMORRHAGE [None]
  - UNEVALUABLE EVENT [None]
  - ATRIAL FIBRILLATION [None]
  - ADRENAL MASS [None]
  - PNEUMONIA [None]
  - NEOPLASM [None]
